FAERS Safety Report 14575696 (Version 10)
Quarter: 2021Q1

REPORT INFORMATION
  Report Type: Report from Study
  Country: FR (occurrence: FR)
  Receive Date: 20180227
  Receipt Date: 20210129
  Transmission Date: 20210419
  Serious: Yes (Death, Hospitalization, Other)
  Sender: FDA-Public Use
  Company Number: FR-BRISTOL-MYERS SQUIBB COMPANY-BMS-2018-016249

PATIENT
  Age: 60 Year
  Sex: Male

DRUGS (4)
  1. SOLUPRED [PREDNISOLONE] [Concomitant]
     Active Substance: PREDNISOLONE
     Indication: PRODUCT USED FOR UNKNOWN INDICATION
     Dosage: 20 MG, UNK
     Route: 065
  2. NIVOLUMAB [Suspect]
     Active Substance: NIVOLUMAB
     Dosage: 225 MILLIGRAM, Q2WK
  3. PARACETAMOL [Concomitant]
     Active Substance: ACETAMINOPHEN
     Indication: PRODUCT USED FOR UNKNOWN INDICATION
     Route: 065
  4. NIVOLUMAB [Suspect]
     Active Substance: NIVOLUMAB
     Indication: LUNG NEOPLASM MALIGNANT
     Dosage: 249 MG, 14 DAYS
     Route: 042
     Dates: start: 20170206

REACTIONS (8)
  - Dysgeusia [Recovered/Resolved]
  - Weight decreased [Recovered/Resolved]
  - Arrhythmia supraventricular [Unknown]
  - Loss of consciousness [Recovered/Resolved]
  - Malignant neoplasm progression [Fatal]
  - Atrial flutter [Unknown]
  - Vertigo [Recovered/Resolved]
  - Malaise [Recovered/Resolved]

NARRATIVE: CASE EVENT DATE: 20170306
